FAERS Safety Report 4769878-6 (Version None)
Quarter: 2005Q3

REPORT INFORMATION
  Report Type: 
  Country: None (occurrence: None)
  Receive Date: 20050915
  Receipt Date: 20050912
  Transmission Date: 20060218
  Serious: Yes (Hospitalization)
  Sender: FDA-Public Use
  Company Number: 2005UW13542

PATIENT
  Sex: Female

DRUGS (3)
  1. SEROQUEL [Suspect]
     Dosage: MULTIPLE STRENGTHS TAKEN
     Route: 048
  2. LAMICTAL [Concomitant]
  3. OTHER MEDICATION [Concomitant]

REACTIONS (2)
  - HEPATIC FAILURE [None]
  - RENAL FAILURE [None]
